FAERS Safety Report 25090451 (Version 6)
Quarter: 2025Q2

REPORT INFORMATION
  Report Type: Spontaneous
  Country: US (occurrence: US)
  Receive Date: 20250318
  Receipt Date: 20250519
  Transmission Date: 20250716
  Serious: No
  Sender: PFIZER
  Company Number: US-PFIZER INC-PV202400170105

PATIENT
  Age: 49 Year
  Sex: Female

DRUGS (3)
  1. TIVDAK [Suspect]
     Active Substance: TISOTUMAB VEDOTIN-TFTV
     Indication: Adenocarcinoma of the cervix
     Dosage: 200 MG, EVERY 3 WEEKS (INFUSION)
     Dates: start: 20250106
  2. TIVDAK [Suspect]
     Active Substance: TISOTUMAB VEDOTIN-TFTV
     Dosage: 192 MG, EVERY 3 WEEKS (INFUSION)
  3. TIVDAK [Suspect]
     Active Substance: TISOTUMAB VEDOTIN-TFTV
     Dosage: 182 MG, EVERY 21 DAYS

REACTIONS (1)
  - Weight decreased [Recovering/Resolving]
